FAERS Safety Report 5999121-1 (Version None)
Quarter: 2008Q4

REPORT INFORMATION
  Report Type: 
  Country: None (occurrence: None)
  Receive Date: 20081211
  Receipt Date: 20081202
  Transmission Date: 20090506
  Serious: Yes (Other)
  Sender: FDA-Public Use
  Company Number: 2008-03360

PATIENT
  Age: 68 Year
  Sex: Male

DRUGS (12)
  1. VELCADE [Suspect]
     Indication: MANTLE CELL LYMPHOMA
     Dosage: 1.5 MG/M2
     Dates: start: 20071124, end: 20071203
  2. RITUXAN [Suspect]
     Indication: MANTLE CELL LYMPHOMA
     Dosage: 785 MG
     Dates: end: 20071117
  3. CARMUSTINE [Suspect]
     Indication: MANTLE CELL LYMPHOMA
     Dosage: 630 MG
     Dates: start: 20071129, end: 20071129
  4. ETOPOSIDE [Suspect]
     Indication: MANTLE CELL LYMPHOMA
     Dosage: 210 MG
     Dates: start: 20071130, end: 20071203
  5. CYTARABINE [Suspect]
     Indication: MANTLE CELL LYMPHOMA
     Dosage: 210 MG
     Dates: start: 20071130, end: 20071203
  6. MELPHALAN (MELPHALAN) [Suspect]
     Indication: MANTLE CELL LYMPHOMA
     Dosage: 290 MG
     Dates: start: 20071204, end: 20071204
  7. ACETAMINOPHEN [Concomitant]
  8. POTASSIUM (POTASSIUM) [Concomitant]
  9. MAGNESIUM (MAGNESIUM) [Concomitant]
  10. AMITRIPTYLINE HYDROCHLORIDE [Concomitant]
  11. ANDRODERM [Concomitant]
  12. FLORINEF [Concomitant]

REACTIONS (6)
  - CARDIAC ENZYMES INCREASED [None]
  - MUSCULAR WEAKNESS [None]
  - PLATELET COUNT DECREASED [None]
  - SYNCOPE [None]
  - TROPONIN I INCREASED [None]
  - WHITE BLOOD CELL COUNT DECREASED [None]
